FAERS Safety Report 10458630 (Version 1)
Quarter: 2014Q3

REPORT INFORMATION
  Report Type: Spontaneous
  Country: FR (occurrence: None)
  Receive Date: 20140915
  Receipt Date: 20140915
  Transmission Date: 20150326
  Serious: Yes (Hospitalization)
  Sender: FDA-Public Use
  Company Number: FK201403673

PATIENT
  Age: 85 Year
  Sex: Male
  Weight: 68 kg

DRUGS (2)
  1. PACLITAXEL (PACLITAXEL) (PACLITAXEL) [Suspect]
     Active Substance: PACLITAXEL
     Indication: OROPHARYNGEAL CANCER
     Dosage: 108MG, 1 WK INTRAVENOUS
     Route: 042
     Dates: start: 20140819, end: 20140819
  2. OROPHARYNGEAL CANCER [Concomitant]

REACTIONS (5)
  - Tremor [None]
  - Hypertension [None]
  - Oxygen saturation decreased [None]
  - Chills [None]
  - Back pain [None]

NARRATIVE: CASE EVENT DATE: 20140819
